FAERS Safety Report 8226152-3 (Version None)
Quarter: 2012Q1

REPORT INFORMATION
  Report Type: 
  Country: None (occurrence: None)
  Receive Date: 20120319
  Receipt Date: 20120301
  Transmission Date: 20120608
  Serious: No
  Sender: FDA-Public Use
  Company Number: THQ2012A01372

PATIENT
  Sex: Female

DRUGS (9)
  1. SPIRONOLACTONE, FUROSEMIDE [Concomitant]
  2. ATENOLOL [Concomitant]
  3. PROMETHAZINE [Concomitant]
  4. FUROSEMIDE SODIUM [Concomitant]
  5. TRIMETAZIDINE HYDROCHLORIDE [Concomitant]
  6. ACTOS [Suspect]
     Indication: TYPE 2 DIABETES MELLITUS
     Dosage: CURRENTLY 30 MG. BUT SHE HAD ALREADY USED 45 MG. (CURRENTLY 30 MG. BUT SHE HAD ALREADY USED 45 MG)
     Dates: start: 20001206, end: 20120210
  7. GLIMEPIRIDE [Concomitant]
  8. ALPRAZOLAM [Concomitant]
  9. SAXAGLIPTIN HYDROCHLORIDE (SAXAGLIPTIN) [Concomitant]

REACTIONS (3)
  - BLADDER CANCER [None]
  - SQUAMOUS CELL CARCINOMA [None]
  - HAEMATURIA [None]
